FAERS Safety Report 6944471-5 (Version None)
Quarter: 2010Q3

REPORT INFORMATION
  Report Type: 
  Country: None (occurrence: None)
  Receive Date: 20100827
  Receipt Date: 20100819
  Transmission Date: 20110219
  Serious: Yes (Other)
  Sender: FDA-Public Use
  Company Number: JP-JNJFOC-20100502465

PATIENT
  Sex: Female
  Weight: 51 kg

DRUGS (16)
  1. DOXORUBICIN HYDROCHLORIDE [Suspect]
     Indication: OVARIAN CANCER RECURRENT
     Dosage: CYCLE 6
     Route: 042
  2. DOXORUBICIN HYDROCHLORIDE [Suspect]
     Dosage: CYCLE 5
     Route: 042
  3. DOXORUBICIN HYDROCHLORIDE [Suspect]
     Dosage: CYCLE 1
     Route: 042
  4. DOXORUBICIN HYDROCHLORIDE [Suspect]
     Dosage: CYCLE 2
     Route: 042
  5. DOXORUBICIN HYDROCHLORIDE [Suspect]
     Dosage: CYCLE 3
     Route: 042
  6. DOXORUBICIN HYDROCHLORIDE [Suspect]
     Dosage: CYCLE 4
     Route: 042
  7. KYTRIL [Concomitant]
     Indication: PROPHYLAXIS
     Route: 042
  8. KYTRIL [Concomitant]
     Route: 042
  9. DEXART [Concomitant]
     Indication: PROPHYLAXIS
     Route: 042
  10. DEXART [Concomitant]
     Route: 042
  11. ZOMETA [Concomitant]
     Indication: PROPHYLAXIS
     Route: 042
  12. ZOMETA [Concomitant]
     Route: 042
  13. UREPEARL [Concomitant]
     Indication: PROPHYLAXIS
     Route: 061
  14. BETAMETHASONE D-CHLORPHENIRAMINE MALEATE [Concomitant]
     Indication: PROPHYLAXIS
     Route: 048
  15. HACHIAZULE [Concomitant]
     Indication: PROPHYLAXIS
     Route: 049
  16. UREPEARL [Concomitant]
     Route: 061

REACTIONS (2)
  - HYPERTENSION [None]
  - NEUTROPHIL COUNT DECREASED [None]
